FAERS Safety Report 24241531 (Version 1)
Quarter: 2024Q3

REPORT INFORMATION
  Report Type: Spontaneous
  Country: FR (occurrence: FR)
  Receive Date: 20240823
  Receipt Date: 20240823
  Transmission Date: 20241017
  Serious: Yes (Hospitalization)
  Sender: NOVARTIS
  Company Number: None

PATIENT
  Age: 49 Year
  Sex: Female
  Weight: 50 kg

DRUGS (1)
  1. TEGRETOL [Suspect]
     Active Substance: CARBAMAZEPINE
     Indication: Trigeminal neuralgia
     Dosage: UNK (0.5 CP LE MATIN, PENDANT 2 JOURS PUIS 0.5CP MATIN ET SOIR PENDANT 1 SEMAINE PUIS PUIS 0.5 COMPR
     Route: 048
     Dates: start: 20240724, end: 20240812

REACTIONS (6)
  - Dermatitis bullous [Not Recovered/Not Resolved]
  - Pyrexia [Not Recovered/Not Resolved]
  - Erythema [Not Recovered/Not Resolved]
  - Odynophagia [Not Recovered/Not Resolved]
  - Eye pruritus [Not Recovered/Not Resolved]
  - Oral pain [Not Recovered/Not Resolved]

NARRATIVE: CASE EVENT DATE: 20240805
